FAERS Safety Report 22027731 (Version 1)
Quarter: 2023Q1

REPORT INFORMATION
  Report Type: Spontaneous
  Country: US (occurrence: US)
  Receive Date: 20230223
  Receipt Date: 20230223
  Transmission Date: 20230418
  Serious: No
  Sender: FDA-Public Use
  Company Number: US-FreseniusKabi-FK202302165

PATIENT
  Age: 16 Year
  Sex: Male

DRUGS (3)
  1. INTRALIPID [Suspect]
     Active Substance: EGG PHOSPHOLIPIDS\GLYCERIN\SOYBEAN OIL
     Indication: Gastrointestinal haemorrhage
  2. SMOFLIPID [Suspect]
     Active Substance: FISH OIL\MEDIUM-CHAIN TRIGLYCERIDES\OLIVE OIL\SOYBEAN OIL
     Indication: Gastrointestinal haemorrhage
  3. OMEGAVEN [Suspect]
     Active Substance: FISH OIL
     Indication: Gastrointestinal haemorrhage
     Dosage: RECEIVING 0.5 G/KG/D INTERMITTENTLY, HAS RECEIVED ~35 TIMES IN THE LAST 2 MONTHS

REACTIONS (2)
  - Hypertriglyceridaemia [Not Recovered/Not Resolved]
  - Off label use [Unknown]
